FAERS Safety Report 4537361-9 (Version None)
Quarter: 2004Q4

REPORT INFORMATION
  Report Type: 
  Country: None (occurrence: None)
  Receive Date: 20041223
  Receipt Date: 20041216
  Transmission Date: 20050328
  Serious: Yes (Hospitalization)
  Sender: FDA-Public Use
  Company Number: DE-ABBOTT-04P-062-0284109-00

PATIENT
  Sex: Female

DRUGS (3)
  1. KLACID [Suspect]
     Indication: PNEUMONIA
     Route: 048
     Dates: start: 20040309, end: 20040322
  2. KLACID I.V. [Suspect]
     Indication: PNEUMONIA
     Route: 042
     Dates: start: 20040307, end: 20040308
  3. CEFUROXIME [Concomitant]
     Indication: PNEUMONIA
     Route: 042
     Dates: start: 20040307, end: 20040316

REACTIONS (4)
  - CONDITION AGGRAVATED [None]
  - OXYGEN SATURATION DECREASED [None]
  - PLEURAL EFFUSION [None]
  - PULMONARY CONGESTION [None]
